FAERS Safety Report 21099710 (Version 1)
Quarter: 2022Q3

REPORT INFORMATION
  Report Type: Spontaneous
  Country: US (occurrence: US)
  Receive Date: 20220719
  Receipt Date: 20220719
  Transmission Date: 20221026
  Serious: No
  Sender: FDA-Public Use
  Company Number: US-BAYER-2022A095082

PATIENT
  Sex: Female

DRUGS (1)
  1. ESTRADIOL HEMIHYDRATE [Suspect]
     Active Substance: ESTRADIOL HEMIHYDRATE

REACTIONS (2)
  - Yellow skin [Unknown]
  - Ocular icterus [Unknown]
